FAERS Safety Report 16231917 (Version 2)
Quarter: 2019Q2

REPORT INFORMATION
  Report Type: Report from Study
  Country: AR (occurrence: AR)
  Receive Date: 20190424
  Receipt Date: 20190430
  Transmission Date: 20190711
  Serious: Yes (Hospitalization)
  Sender: FDA-Public Use
  Company Number: AR-ACTELION-A-CH2019-189422

PATIENT
  Sex: Female
  Weight: 55 kg

DRUGS (2)
  1. OXYGEN. [Concomitant]
     Active Substance: OXYGEN
  2. OPSUMIT [Suspect]
     Active Substance: MACITENTAN
     Indication: PULMONARY ARTERIAL HYPERTENSION
     Dosage: 10 MG, QD
     Route: 048
     Dates: start: 201401

REACTIONS (3)
  - Lung disorder [Recovering/Resolving]
  - Weight increased [Unknown]
  - Pneumonia [Recovering/Resolving]
